FAERS Safety Report 6285307-8 (Version None)
Quarter: 2009Q3

REPORT INFORMATION
  Report Type: 
  Country: None (occurrence: None)
  Receive Date: 20090727
  Receipt Date: 20090723
  Transmission Date: 20100115
  Serious: No
  Sender: FDA-Public Use
  Company Number: US-B.I. PHARMACEUTICALS,INC./RIDGEFIELD-2009-BP-08572BP

PATIENT
  Sex: Male

DRUGS (2)
  1. FLOMAX [Suspect]
     Dosage: 0.4 MG
     Route: 048
     Dates: start: 20080401
  2. HYDROCORTISONE [Concomitant]
     Dosage: 10 MG

REACTIONS (1)
  - POLLAKIURIA [None]
